FAERS Safety Report 8978052 (Version 1)
Quarter: 2012Q4

REPORT INFORMATION
  Report Type: 
  Country: US (occurrence: US)
  Receive Date: 20121220
  Receipt Date: 20121220
  Transmission Date: 20130627
  Serious: Yes (Hospitalization)
  Sender: FDA-Public Use
  Company Number: US-B.I. PHARMACEUTICALS,INC./RIDGEFIELD-2012-BI-03521BP

PATIENT
  Sex: Male
  Weight: 61 kg

DRUGS (5)
  1. SPIRIVA [Suspect]
     Indication: EMPHYSEMA
     Dosage: 18 mcg
     Route: 055
     Dates: start: 2003
  2. ZANTAC COOL MINT (TABLETS) [Suspect]
     Indication: DYSPEPSIA
     Dosage: 150 mg
     Route: 048
     Dates: start: 1980
  3. CYCLOBENZAPRINE [Concomitant]
     Indication: MUSCLE SPASMS
     Dosage: 30 mg
     Route: 048
     Dates: start: 20110828
  4. SERTRALINE HCL [Concomitant]
     Dosage: 25 mg
     Route: 048
     Dates: start: 2000
  5. SIMVASTATIN [Concomitant]
     Indication: BLOOD CHOLESTEROL INCREASED
     Dosage: 40 mg
     Route: 048
     Dates: start: 2000

REACTIONS (3)
  - Lung infection [Recovered/Resolved]
  - Pneumonia [Recovered/Resolved]
  - Abnormal loss of weight [Not Recovered/Not Resolved]
